FAERS Safety Report 8613475-9 (Version None)
Quarter: 2012Q3

REPORT INFORMATION
  Report Type: 
  Country: None (occurrence: None)
  Receive Date: 20120823
  Receipt Date: 20120809
  Transmission Date: 20120928
  Serious: Yes (Hospitalization)
  Sender: FDA-Public Use
  Company Number: KR-MYLANLABS-2012S1016609

PATIENT
  Age: 73 Year
  Sex: Female
  Weight: 54 kg

DRUGS (10)
  1. MIDAZOLAM [Concomitant]
     Indication: PREMEDICATION
     Route: 030
  2. LIDOCAINE [Concomitant]
     Route: 008
  3. ROCURONIUM BROMIDE [Concomitant]
     Indication: ANAESTHESIA
     Route: 042
  4. THIOPENTAL SODIUM [Concomitant]
     Indication: ANAESTHESIA
     Route: 042
  5. ATRACURIUM BESYLATE [Concomitant]
     Indication: ANAESTHESIA
     Route: 065
  6. ROPIVACAINE HYDROCHLORIDE [Concomitant]
     Indication: ANALGESIC THERAPY
     Dosage: 9ML 0.2% LOADING DOSE; 89ML 0.2% IN 100ML AT INFUSION RATE OF 2ML/HOUR
     Route: 008
  7. GLYCOPYRROLATE [Concomitant]
     Indication: PREMEDICATION
     Route: 030
  8. EPINEPHRINE [Concomitant]
     Route: 008
  9. FENTANYL [Suspect]
     Indication: ANALGESIC THERAPY
     Dosage: 50MICROG LOADING DOSE; 550MICROG IN 100ML AT INFUSION RATE OF 2ML/HOUR
     Route: 008
  10. DESFLURANE [Concomitant]
     Indication: ANAESTHESIA
     Dosage: 4-6%
     Route: 065

REACTIONS (4)
  - DIZZINESS [None]
  - PROCEDURAL NAUSEA [None]
  - PROCEDURAL VOMITING [None]
  - NYSTAGMUS [None]
